FAERS Safety Report 7466847-2 (Version None)
Quarter: 2011Q2

REPORT INFORMATION
  Report Type: 
  Country: None (occurrence: None)
  Receive Date: 20110509
  Receipt Date: 20100910
  Transmission Date: 20111010
  Serious: No
  Sender: FDA-Public Use
  Company Number: US-ALEXION-A201001152

PATIENT
  Sex: Female

DRUGS (3)
  1. VITAMIN B12                        /00056201/ [Concomitant]
     Indication: VITAMIN B12 DEFICIENCY
     Dosage: UNK, QMO
  2. SOLIRIS [Suspect]
     Indication: PAROXYSMAL NOCTURNAL HAEMOGLOBINURIA
     Dosage: 900 MG, Q2W
     Route: 042
  3. COUMADIN [Concomitant]
     Dosage: UNK

REACTIONS (2)
  - BREAST ABSCESS [None]
  - BREAST INFECTION [None]
